FAERS Safety Report 8094484-8 (Version None)
Quarter: 2012Q1

REPORT INFORMATION
  Report Type: 
  Country: None (occurrence: None)
  Receive Date: 20120130
  Receipt Date: 20120117
  Transmission Date: 20120608
  Serious: Yes (Hospitalization, Other)
  Sender: FDA-Public Use
  Company Number: US-ELI_LILLY_AND_COMPANY-US201201005140

PATIENT
  Age: 65 Year
  Sex: Female

DRUGS (4)
  1. ANTIHYPERTENSIVES [Concomitant]
  2. LIPID MODIFYING AGENTS [Concomitant]
  3. CALCIUM W/VITAMIN D NOS [Concomitant]
  4. EVISTA [Suspect]
     Indication: OSTEOPOROSIS
     Dosage: 60 MG, QD
     Dates: end: 20111101

REACTIONS (2)
  - PULMONARY EMBOLISM [None]
  - CEREBROVASCULAR ACCIDENT [None]
